FAERS Safety Report 4576569-3 (Version None)
Quarter: 2005Q1

REPORT INFORMATION
  Report Type: 
  Country: None (occurrence: None)
  Receive Date: 20050119
  Receipt Date: 20040527
  Transmission Date: 20050727
  Serious: Yes (Other)
  Sender: FDA-Public Use
  Company Number: A03200401712

PATIENT
  Age: 63 Year
  Sex: Male
  Weight: 107.9561 kg

DRUGS (13)
  1. PLAVIX [Suspect]
     Indication: CEREBROVASCULAR ACCIDENT
     Dosage: 75 MG QD - ORAL
     Route: 048
     Dates: start: 20030301, end: 20030301
  2. PLAVIX [Suspect]
     Indication: MYOCARDIAL INFARCTION
     Dosage: 75 MG QD - ORAL
     Route: 048
     Dates: start: 20030301, end: 20030301
  3. PLAVIX [Suspect]
     Indication: STENT PLACEMENT
     Dosage: 75 MG QD - ORAL
     Route: 048
     Dates: start: 20030301, end: 20030301
  4. METOPROLOL [Concomitant]
  5. LISINOPRIL [Concomitant]
  6. ATENOLOL [Concomitant]
  7. HYDROCHLOROTHIAZIDE [Concomitant]
  8. CARBINOXAMINE MALEATE [Concomitant]
  9. ACETYLSALICYLIC ACID [Concomitant]
  10. GLYBURIDE [Concomitant]
  11. COLCHICINE [Concomitant]
  12. ALLOPURINOL [Concomitant]
  13. SIMVASTATIN [Concomitant]

REACTIONS (2)
  - ANGIONEUROTIC OEDEMA [None]
  - HEART RATE IRREGULAR [None]
